FAERS Safety Report 20447041 (Version 3)
Quarter: 2022Q2

REPORT INFORMATION
  Report Type: Other
  Country: US (occurrence: None)
  Receive Date: 20220209
  Receipt Date: 20220607
  Transmission Date: 20220721
  Serious: Yes (Other)
  Sender: FDA-Public Use
  Company Number: US-ROCHE-3015218

PATIENT
  Sex: Female

DRUGS (1)
  1. OCREVUS [Suspect]
     Active Substance: OCRELIZUMAB
     Indication: Relapsing-remitting multiple sclerosis
     Dosage: DATE OF TREATMENTS: 19/JUL/2021, ANTICIPATED DATE OF TREATMENT: 17/JAN/2022
     Route: 042

REACTIONS (1)
  - COVID-19 pneumonia [Recovering/Resolving]
